FAERS Safety Report 17653835 (Version 1)
Quarter: 2020Q2

REPORT INFORMATION
  Report Type: Report from Study
  Country: None (occurrence: US)
  Receive Date: 20200410
  Receipt Date: 20200410
  Transmission Date: 20200713
  Serious: No
  Sender: FDA-Public Use
  Company Number: US-BIOVITRUM-2020US1504

PATIENT
  Sex: Female

DRUGS (1)
  1. KINERET [Suspect]
     Active Substance: ANAKINRA
     Indication: JUVENILE IDIOPATHIC ARTHRITIS
     Route: 058
     Dates: start: 20200314

REACTIONS (10)
  - Dizziness [Unknown]
  - Erythema [Unknown]
  - Hypersensitivity [Unknown]
  - Pruritus [Unknown]
  - Injection site reaction [Unknown]
  - Mass [Unknown]
  - Injection site pain [Recovered/Resolved]
  - Headache [Unknown]
  - Off label use [Unknown]
  - Urticaria [Unknown]
